FAERS Safety Report 20028193 (Version 1)
Quarter: 2021Q4

REPORT INFORMATION
  Report Type: Report from Study
  Country: US (occurrence: US)
  Receive Date: 20211103
  Receipt Date: 20211103
  Transmission Date: 20220303
  Serious: Yes (Other)
  Sender: FDA-Public Use
  Company Number: US-JAZZ-2021-US-020331

PATIENT
  Age: 66 Year
  Sex: Female

DRUGS (2)
  1. SOLRIAMFETOL [Suspect]
     Active Substance: SOLRIAMFETOL
     Indication: Narcolepsy
     Dosage: UNKNOWN DOSE AND FREQUENCY
     Route: 048
  2. SOLRIAMFETOL [Suspect]
     Active Substance: SOLRIAMFETOL
     Indication: Sleep apnoea syndrome

REACTIONS (3)
  - Type 2 diabetes mellitus [Unknown]
  - Weight increased [Unknown]
  - Asthenia [Unknown]
